FAERS Safety Report 16312214 (Version 2)
Quarter: 2019Q2

REPORT INFORMATION
  Report Type: Spontaneous
  Country: PL (occurrence: PL)
  Receive Date: 20190515
  Receipt Date: 20190516
  Transmission Date: 20190711
  Serious: Yes (Other)
  Sender: FDA-Public Use
  Company Number: PL-JNJFOC-20190506182

PATIENT
  Age: 65 Year
  Sex: Female

DRUGS (9)
  1. DICLOFENAC [Suspect]
     Active Substance: DICLOFENAC
     Indication: PAIN
     Dosage: 75 MG, BID
     Route: 065
  2. METAMIZOLE [Suspect]
     Active Substance: METAMIZOLE
     Indication: PAIN
     Dosage: 500 MG, TID
     Route: 065
  3. IBUPROFEN. [Suspect]
     Active Substance: IBUPROFEN
     Indication: PAIN
     Dosage: 400 MG, UNK
     Route: 065
  4. DICLOFENAC [Suspect]
     Active Substance: DICLOFENAC
     Indication: PAIN
     Dosage: APPLIED FOR 12 HOURS
     Route: 061
  5. TRAMADOL. [Suspect]
     Active Substance: TRAMADOL
     Indication: PAIN
     Dosage: 37.5 MG, UNK
     Route: 065
  6. PARACETAMOL [Suspect]
     Active Substance: ACETAMINOPHEN
     Indication: PAIN
     Dosage: 375 MG, QID
     Route: 065
  7. METAMIZOLE [Suspect]
     Active Substance: METAMIZOLE
     Indication: PAIN
     Dosage: 500 MG, UNK, IMMEDIATELY
     Route: 065
  8. PARACETAMOL [Suspect]
     Active Substance: ACETAMINOPHEN
     Route: 065
  9. TRAMADOL. [Suspect]
     Active Substance: TRAMADOL
     Indication: PAIN
     Dosage: 100 MG BID
     Route: 065

REACTIONS (13)
  - Back pain [Recovering/Resolving]
  - Oedema peripheral [Unknown]
  - Arthropathy [Unknown]
  - Spinal cord compression [Unknown]
  - Dyspepsia [Unknown]
  - Dry mouth [Recovered/Resolved]
  - Muscle tone disorder [Unknown]
  - Osteoarthritis [Unknown]
  - Nausea [Recovered/Resolved]
  - Intervertebral disc disorder [Unknown]
  - Palpitations [Unknown]
  - Abdominal pain [Recovering/Resolving]
  - Bone density decreased [Unknown]
